FAERS Safety Report 4885841-9 (Version None)
Quarter: 2006Q1

REPORT INFORMATION
  Report Type: 
  Country: None (occurrence: None)
  Receive Date: 20060117
  Receipt Date: 20060109
  Transmission Date: 20060701
  Serious: Yes (Death)
  Sender: FDA-Public Use
  Company Number: 2006BH000312

PATIENT
  Age: 65 Year
  Sex: Female

DRUGS (1)
  1. DOBUTAMINE HCL [Suspect]

REACTIONS (10)
  - CARDIAC TAMPONADE [None]
  - CORONARY ARTERY STENOSIS [None]
  - GENERAL PHYSICAL HEALTH DETERIORATION [None]
  - HAEMODYNAMIC INSTABILITY [None]
  - HYPOTENSION [None]
  - MYOCARDIAL RUPTURE [None]
  - PERICARDIAL EFFUSION [None]
  - RENAL FAILURE ACUTE [None]
  - SEPSIS [None]
  - VASCULAR INSUFFICIENCY [None]
